FAERS Safety Report 4938470-2 (Version None)
Quarter: 2006Q1

REPORT INFORMATION
  Report Type: 
  Country: None (occurrence: None)
  Receive Date: 20060306
  Receipt Date: 20060217
  Transmission Date: 20060701
  Serious: Yes (Hospitalization)
  Sender: FDA-Public Use
  Company Number: US_0508120895

PATIENT
  Age: 24 Year
  Sex: Male
  Weight: 61.7 kg

DRUGS (5)
  1. ZYPREXA [Suspect]
     Indication: BIPOLAR DISORDER
     Dosage: SEE IMAGE
     Dates: start: 19980428, end: 19990828
  2. ZYPREXA [Suspect]
     Indication: BIPOLAR DISORDER
     Dosage: SEE IMAGE
     Dates: start: 20010621, end: 20051029
  3. HUMULIN 70/30 [Concomitant]
  4. NOVOLOG [Concomitant]
  5. FOLIC ACID [Concomitant]

REACTIONS (9)
  - DIABETES MELLITUS [None]
  - ENCEPHALOMALACIA [None]
  - GRAND MAL CONVULSION [None]
  - HYPOGLYCAEMIA [None]
  - ISCHAEMIC CEREBRAL INFARCTION [None]
  - TRAUMATIC BRAIN INJURY [None]
  - VENOUS THROMBOSIS [None]
  - VISUAL DISTURBANCE [None]
  - WEIGHT DECREASED [None]
